FAERS Safety Report 22218082 (Version 3)
Quarter: 2023Q2

REPORT INFORMATION
  Report Type: Spontaneous
  Country: US (occurrence: US)
  Receive Date: 20230417
  Receipt Date: 20230518
  Transmission Date: 20230721
  Serious: No
  Sender: FDA-Public Use
  Company Number: US-PFIZER INC-2020394238

PATIENT
  Age: 1 Year
  Sex: Female
  Weight: 7.71 kg

DRUGS (2)
  1. GENOTROPIN [Suspect]
     Active Substance: SOMATROPIN
     Indication: Hypopituitarism
     Dosage: 0.2 MG
  2. GENOTROPIN [Suspect]
     Active Substance: SOMATROPIN
     Dosage: 0.3 MG 1X/DAY (ROTATE BETWEEN ARMS AND LEGS AND IT GOES INTO FATTY PART)

REACTIONS (4)
  - Device breakage [Unknown]
  - Device use issue [Unknown]
  - Device issue [Unknown]
  - Off label use [Unknown]
